FAERS Safety Report 17442296 (Version 1)
Quarter: 2020Q1

REPORT INFORMATION
  Report Type: Spontaneous
  Country: FR (occurrence: FR)
  Receive Date: 20200220
  Receipt Date: 20200220
  Transmission Date: 20200409
  Serious: Yes (Hospitalization)
  Sender: FDA-Public Use
  Company Number: FR-NAPPMUNDI-GBR-2020-0075107

PATIENT
  Age: 90 Year
  Sex: Male
  Weight: 91 kg

DRUGS (4)
  1. OXYCODONE HYDROCHLORIDE. [Suspect]
     Active Substance: OXYCODONE HYDROCHLORIDE
     Dosage: 40 MG, DAILY (A LIBERATION PROLONGEE (40 MG, DAILY))
     Route: 048
     Dates: start: 20190306
  2. OXYCODONE HYDROCHLORIDE. [Suspect]
     Active Substance: OXYCODONE HYDROCHLORIDE
     Indication: PAIN
     Dosage: 20 MG, DAILY (SI BESOIN (20 MG, DAILY, PER NEED))
     Route: 048
     Dates: start: 20190306
  3. LEVOFLOXACINE [Suspect]
     Active Substance: LEVOFLOXACIN
     Indication: PSOAS ABSCESS
     Dosage: 750 MG, DAILY
     Route: 048
     Dates: start: 20190313, end: 20190406
  4. OXYNORMORO [Suspect]
     Active Substance: OXYCODONE HYDROCHLORIDE
     Indication: PAIN
     Dosage: 1 DF, Q4H (SI BESOIN (1 DF, Q4H, STRENGTH 10 MG))
     Route: 048
     Dates: start: 20190306

REACTIONS (1)
  - Subileus [Recovered/Resolved]

NARRATIVE: CASE EVENT DATE: 20190326
